FAERS Safety Report 7465768-9 (Version None)
Quarter: 2011Q2

REPORT INFORMATION
  Report Type: 
  Country: None (occurrence: None)
  Receive Date: 20110509
  Receipt Date: 20110428
  Transmission Date: 20111010
  Serious: Yes (Hospitalization)
  Sender: FDA-Public Use
  Company Number: SE-ASTRAZENECA-2011SE24376

PATIENT
  Age: 81 Year
  Sex: Female

DRUGS (5)
  1. TROMBYL [Concomitant]
  2. CITALOPRAM HYDROBROMIDE [Suspect]
     Route: 048
  3. CITALOPRAM HYDROBROMIDE [Suspect]
     Route: 048
  4. KALCIPOS-D [Concomitant]
  5. ATACAND [Suspect]
     Indication: ESSENTIAL HYPERTENSION
     Route: 048
     Dates: end: 20110321

REACTIONS (1)
  - HYPOTENSION [None]
